FAERS Safety Report 7444920-2 (Version None)
Quarter: 2011Q2

REPORT INFORMATION
  Report Type: 
  Country: None (occurrence: None)
  Receive Date: 20110429
  Receipt Date: 20110418
  Transmission Date: 20111010
  Serious: Yes (Other)
  Sender: FDA-Public Use
  Company Number: PHHY2010CA19473

PATIENT
  Sex: Female

DRUGS (7)
  1. WELLBUTRIN [Concomitant]
  2. ACLASTA/ZOLEDRONATE [Suspect]
     Indication: OSTEOPOROSIS
     Dosage: 5 MG/100ML, YEARLY
     Route: 042
     Dates: start: 20091110
  3. VITAMIN D [Concomitant]
     Dosage: 800 IU
  4. SYNTHROID [Concomitant]
  5. CALCIUM [Concomitant]
     Dosage: 1000 MG
  6. CLONAZEPAM [Concomitant]
  7. NEXIUM [Concomitant]

REACTIONS (4)
  - FOOT FRACTURE [None]
  - RIB FRACTURE [None]
  - FALL [None]
  - SKELETAL INJURY [None]
